FAERS Safety Report 17536726 (Version 2)
Quarter: 2020Q1

REPORT INFORMATION
  Report Type: Spontaneous
  Country: US (occurrence: US)
  Receive Date: 20200313
  Receipt Date: 20200323
  Transmission Date: 20200409
  Serious: No
  Sender: FDA-Public Use
  Company Number: US-BIOGEN-2013BI118344

PATIENT
  Sex: Female

DRUGS (4)
  1. AVONEX PEN [Suspect]
     Active Substance: INTERFERON BETA-1A
     Route: 030
  2. AVONEX PEN [Suspect]
     Active Substance: INTERFERON BETA-1A
  3. AVONEX PEN [Suspect]
     Active Substance: INTERFERON BETA-1A
     Indication: MULTIPLE SCLEROSIS
     Route: 030
     Dates: start: 19990701
  4. AVONEX PEN [Suspect]
     Active Substance: INTERFERON BETA-1A

REACTIONS (10)
  - Panic reaction [Unknown]
  - Injection site pain [Not Recovered/Not Resolved]
  - Product dose omission [Unknown]
  - Influenza like illness [Unknown]
  - Aphasia [Unknown]
  - Neuropathy peripheral [Not Recovered/Not Resolved]
  - Muscular weakness [Unknown]
  - Tremor [Not Recovered/Not Resolved]
  - Needle fatigue [Unknown]
  - Keloid scar [Not Recovered/Not Resolved]

NARRATIVE: CASE EVENT DATE: 2012
